FAERS Safety Report 7424867-8 (Version None)
Quarter: 2011Q2

REPORT INFORMATION
  Report Type: 
  Country: None (occurrence: None)
  Receive Date: 20110419
  Receipt Date: 20110415
  Transmission Date: 20111010
  Serious: No
  Sender: FDA-Public Use
  Company Number: US-MERCK-1104USA00729

PATIENT
  Age: 63 Year
  Sex: Female

DRUGS (7)
  1. OMEPRAZOLE [Concomitant]
     Route: 065
  2. DEPAKOTE [Concomitant]
     Route: 065
  3. ZETIA [Suspect]
     Indication: BLOOD CHOLESTEROL INCREASED
     Route: 048
     Dates: start: 20110124
  4. HYDROCHLOROTHIAZIDE [Concomitant]
     Route: 065
  5. COZAAR [Concomitant]
     Route: 048
  6. DILANTIN [Concomitant]
     Route: 065
  7. TRILIPIX [Concomitant]
     Route: 065

REACTIONS (5)
  - BACK PAIN [None]
  - AGEUSIA [None]
  - NAUSEA [None]
  - FATIGUE [None]
  - SOMNOLENCE [None]
